FAERS Safety Report 9691184 (Version 1)
Quarter: 2013Q4

REPORT INFORMATION
  Report Type: Spontaneous
  Country: GB (occurrence: GB)
  Receive Date: 20131115
  Receipt Date: 20131115
  Transmission Date: 20140711
  Serious: Yes (Death, Hospitalization)
  Sender: FDA-Public Use
  Company Number: GB-SA-2013SA115040

PATIENT
  Age: 76 Year
  Sex: Male

DRUGS (9)
  1. MULTAQ [Suspect]
     Indication: PRODUCT USED FOR UNKNOWN INDICATION
     Route: 048
     Dates: start: 20131011, end: 20131015
  2. BISOPROLOL [Concomitant]
     Route: 065
  3. FUROSEMIDE [Concomitant]
     Route: 065
  4. OMEPRAZOLE [Concomitant]
     Route: 065
  5. ACETYLCYSTEINE [Concomitant]
     Route: 065
  6. ZOPICLONE [Concomitant]
     Route: 065
  7. APIXABAN [Concomitant]
     Route: 065
  8. BECLOMETASONE [Concomitant]
     Route: 065
  9. VERAPAMIL [Concomitant]
     Dosage: STOPPED 48 HOURS PREVIOUS TO DRONEDARONE STARTING
     Route: 065
     Dates: end: 20131009

REACTIONS (4)
  - Hepatotoxicity [Fatal]
  - Alanine aminotransferase increased [Fatal]
  - Pneumonia [Fatal]
  - Sepsis [Fatal]
